FAERS Safety Report 24651030 (Version 1)
Quarter: 2024Q4

REPORT INFORMATION
  Report Type: Spontaneous
  Country: CN (occurrence: CN)
  Receive Date: 20241122
  Receipt Date: 20241122
  Transmission Date: 20250115
  Serious: Yes (Hospitalization)
  Sender: AMGEN
  Company Number: CN-AMGEN-CHNSP2024226585

PATIENT
  Age: 67 Year
  Sex: Female
  Weight: 48 kg

DRUGS (3)
  1. XGEVA [Suspect]
     Active Substance: DENOSUMAB
     Indication: Breast cancer
     Dosage: 150 MILLIGRAM (FREQUENCY: 1, DURATION OF REGIMEN: 1)
     Route: 058
     Dates: start: 20240930, end: 20240930
  2. FULVESTRANT [Suspect]
     Active Substance: FULVESTRANT
     Indication: Breast cancer
     Dosage: 5.00 MILLIGRAM (FREQUENCY: 1, DURATION OF REGIMEN: 1)
     Route: 030
     Dates: start: 20240930, end: 20240930
  3. DALPICICLIB [Suspect]
     Active Substance: DALPICICLIB
     Indication: Breast cancer
     Dosage: 150 MILLIGRAM (FREQUENCY: 1, DURATION OF REGIMEN: 1)
     Route: 048
     Dates: start: 20240930, end: 20241020

REACTIONS (2)
  - Anaemia [Unknown]
  - White blood cell count decreased [Unknown]

NARRATIVE: CASE EVENT DATE: 20241028
